FAERS Safety Report 15315519 (Version 1)
Quarter: 2018Q3

REPORT INFORMATION
  Report Type: Spontaneous
  Country: BR (occurrence: BR)
  Receive Date: 20180824
  Receipt Date: 20180824
  Transmission Date: 20181010
  Serious: Yes (Hospitalization, Other)
  Sender: FDA-Public Use
  Company Number: BR-ASTRAZENECA-2018SF05825

PATIENT
  Sex: Male

DRUGS (1)
  1. SEROQUEL [Suspect]
     Active Substance: QUETIAPINE FUMARATE
     Dosage: 100.0MG UNKNOWN
     Route: 048

REACTIONS (5)
  - Multiple injuries [Not Recovered/Not Resolved]
  - Product use issue [Unknown]
  - Road traffic accident [Not Recovered/Not Resolved]
  - Off label use [Unknown]
  - Sedation [Not Recovered/Not Resolved]
